FAERS Safety Report 18816073 (Version 1)
Quarter: 2021Q1

REPORT INFORMATION
  Report Type: Spontaneous
  Country: US (occurrence: US)
  Receive Date: 20210130
  Receipt Date: 20210130
  Transmission Date: 20210419
  Serious: Yes (Life-Threatening)
  Sender: FDA-Public Use
  Company Number: None

PATIENT
  Age: 56 Year
  Sex: Male
  Weight: 105.69 kg

DRUGS (1)
  1. LOSARTAN (LOSARTAN POTASSIUM 100MG TAB) [Suspect]
     Active Substance: LOSARTAN POTASSIUM
     Indication: HYPERTENSION
     Route: 048
     Dates: start: 20170426, end: 20201022

REACTIONS (2)
  - Documented hypersensitivity to administered product [None]
  - Angioedema [None]

NARRATIVE: CASE EVENT DATE: 20200930
